FAERS Safety Report 10211166 (Version 1)
Quarter: 2014Q2

REPORT INFORMATION
  Report Type: Spontaneous
  Country: US (occurrence: None)
  Receive Date: 20140528
  Receipt Date: 20140528
  Transmission Date: 20141212
  Serious: No
  Sender: FDA-Public Use
  Company Number: FDB-2014-017

PATIENT
  Age: 6 Year
  Sex: Male
  Weight: 18 kg

DRUGS (1)
  1. TECHNETIUM TC-99M SULFUR COLLOID KIT [Suspect]
     Indication: GASTRIC EMPTYING STUDY
     Route: 048

REACTIONS (2)
  - Gastrooesophageal reflux disease [None]
  - Gastrointestinal disorder [None]
